FAERS Safety Report 7937785-3 (Version None)
Quarter: 2011Q4

REPORT INFORMATION
  Report Type: 
  Country: None (occurrence: None)
  Receive Date: 20111123
  Receipt Date: 20111122
  Transmission Date: 20120403
  Serious: No
  Sender: FDA-Public Use
  Company Number: PHHY2009BR11662

PATIENT
  Sex: Female
  Weight: 64 kg

DRUGS (2)
  1. FORMOTEROL FUMARATE [Suspect]
     Dosage: 12/400 MCG, QD
  2. FORMOTEROL FUMARATE [Suspect]
     Indication: ASTHMA
     Dosage: 12/400 MCG, BID

REACTIONS (1)
  - MATERNAL EXPOSURE DURING PREGNANCY [None]
